FAERS Safety Report 13087675 (Version 1)
Quarter: 2017Q1

REPORT INFORMATION
  Report Type: Spontaneous
  Country: US (occurrence: US)
  Receive Date: 20170105
  Receipt Date: 20170105
  Transmission Date: 20170428
  Serious: No
  Sender: FDA-Public Use
  Company Number: US-ASTRAZENECA-2016SF31947

PATIENT
  Sex: Male
  Weight: 122 kg

DRUGS (28)
  1. LIDOCAINE. [Concomitant]
     Active Substance: LIDOCAINE
     Route: 061
  2. VIAGRA [Concomitant]
     Active Substance: SILDENAFIL CITRATE
     Route: 048
  3. ZETIA [Concomitant]
     Active Substance: EZETIMIBE
     Route: 048
  4. METOPROLOL TARTRATE. [Concomitant]
     Active Substance: METOPROLOL TARTRATE
     Route: 048
  5. VENTOLIN HFA [Concomitant]
     Active Substance: ALBUTEROL SULFATE
     Dosage: 1-2 PUFFS EVERY 4-6 HOURS AS NEEDED
     Route: 055
  6. OMEPRAZOLE. [Suspect]
     Active Substance: OMEPRAZOLE
     Route: 048
  7. LASIX [Concomitant]
     Active Substance: FUROSEMIDE
     Route: 048
  8. AMARYL [Concomitant]
     Active Substance: GLIMEPIRIDE
     Route: 048
  9. LOSARTAN POTASSIUM. [Concomitant]
     Active Substance: LOSARTAN POTASSIUM
     Route: 048
  10. MORPHINE SULFATE. [Concomitant]
     Active Substance: MORPHINE SULFATE
     Route: 048
  11. MORPHINE SULFATE. [Concomitant]
     Active Substance: MORPHINE SULFATE
     Route: 048
  12. LISINOPRIL. [Suspect]
     Active Substance: LISINOPRIL
     Route: 048
  13. OXYCODONE [Concomitant]
     Active Substance: OXYCODONE
     Route: 048
  14. BUPROPION HCL ER [Concomitant]
     Active Substance: BUPROPION HYDROCHLORIDE
     Route: 048
  15. LYRICA [Concomitant]
     Active Substance: PREGABALIN
     Indication: NEURALGIA
     Route: 048
  16. MULTIPLE VITAMIN [Concomitant]
     Active Substance: VITAMINS
  17. ALLOPURINOL. [Concomitant]
     Active Substance: ALLOPURINOL
     Route: 048
  18. LEVOTHYROXINE SODIUM. [Concomitant]
     Active Substance: LEVOTHYROXINE SODIUM
     Route: 048
  19. METHYLPHENIDATE. [Concomitant]
     Active Substance: METHYLPHENIDATE
     Route: 048
  20. CRESTOR [Suspect]
     Active Substance: ROSUVASTATIN CALCIUM
     Route: 048
  21. ASPIRIN. [Concomitant]
     Active Substance: ASPIRIN
     Route: 048
  22. JANUVIA [Concomitant]
     Active Substance: SITAGLIPTIN PHOSPHATE
     Dosage: TAKE HALF TABLET
     Route: 048
  23. LORAZEPAM. [Concomitant]
     Active Substance: LORAZEPAM
     Route: 048
  24. LYRICA [Concomitant]
     Active Substance: PREGABALIN
     Indication: NEURALGIA
     Route: 048
  25. OFLOXACIN. [Concomitant]
     Active Substance: OFLOXACIN
     Dosage: 5 DROPS INTO THE AFFECTED EAR(S) TWICE DAILY
  26. POTASSIUM CHLORIDE. [Concomitant]
     Active Substance: POTASSIUM CHLORIDE
     Route: 048
  27. VITAMIN D [Concomitant]
     Active Substance: CHOLECALCIFEROL
     Route: 048
  28. DIVALPROEX SODIUM. [Concomitant]
     Active Substance: DIVALPROEX SODIUM
     Route: 048

REACTIONS (3)
  - Myalgia [Unknown]
  - Cough [Unknown]
  - Drug hypersensitivity [Unknown]
